FAERS Safety Report 15749461 (Version 1)
Quarter: 2018Q4

REPORT INFORMATION
  Report Type: Report from Study
  Country: ES (occurrence: ES)
  Receive Date: 20181221
  Receipt Date: 20181221
  Transmission Date: 20190205
  Serious: Yes (Hospitalization, Other)
  Sender: FDA-Public Use
  Company Number: ES-TEVA-2018-ES-989547

PATIENT
  Age: 91 Year
  Sex: Female

DRUGS (9)
  1. LEXATIN [Concomitant]
  2. MOTILIUM [Concomitant]
     Active Substance: DOMPERIDONE
  3. LORAZEPAM (1864A) [Concomitant]
     Active Substance: LORAZEPAM
  4. SEGURIL [Suspect]
     Active Substance: FUROSEMIDE
     Indication: CARDIAC FAILURE
     Dosage: 1 DOSAGE FORMS DAILY; 1-0-0
     Route: 048
     Dates: start: 2015
  5. ENEMA CASEN 139 MG/ML + 32 MG/ML SOLUCI?N RECTAL [Concomitant]
  6. OMEPRAZOL (2141A) [Concomitant]
     Active Substance: OMEPRAZOLE
  7. ALDOCUMAR [Concomitant]
     Active Substance: WARFARIN SODIUM
  8. ENALAPRIL 20 MG COMPRIMIDO [Suspect]
     Active Substance: ENALAPRIL
     Indication: CARDIAC FAILURE
     Dosage: 20 MILLIGRAM DAILY;
     Route: 048
     Dates: start: 2017
  9. PARACETAMOL (12A) [Concomitant]
     Active Substance: ACETAMINOPHEN

REACTIONS (1)
  - Chronic kidney disease [Recovering/Resolving]

NARRATIVE: CASE EVENT DATE: 2018
